FAERS Safety Report 6264279-6 (Version None)
Quarter: 2009Q3

REPORT INFORMATION
  Report Type: 
  Country: None (occurrence: None)
  Receive Date: 20090710
  Receipt Date: 20090619
  Transmission Date: 20100115
  Serious: Yes (Hospitalization)
  Sender: FDA-Public Use
  Company Number: JP-GENENTECH-285438

PATIENT
  Age: 70 Year
  Sex: Female

DRUGS (4)
  1. HERCEPTIN [Suspect]
     Indication: BREAST CANCER METASTATIC
     Dosage: 170 MG, UNK
     Route: 041
  2. HERCEPTIN [Suspect]
     Dosage: 85 MG, 1/WEEK
  3. AREDIA [Suspect]
     Indication: BREAST CANCER METASTATIC
     Dosage: 90 MG, Q4W
     Route: 041
  4. TAXOTERE [Concomitant]
     Indication: DRUG USE FOR UNKNOWN INDICATION
     Dosage: 100 MG/KG, 3/WEEK

REACTIONS (1)
  - OSTEONECROSIS [None]
